FAERS Safety Report 9397425 (Version 1)
Quarter: 2013Q3

REPORT INFORMATION
  Report Type: Spontaneous
  Country: FR (occurrence: FR)
  Receive Date: 20130712
  Receipt Date: 20130712
  Transmission Date: 20140515
  Serious: Yes (Hospitalization)
  Sender: FDA-Public Use
  Company Number: FR-EISAI INC-E2090-02734-SPO-FR

PATIENT
  Age: 34 Year
  Sex: Female

DRUGS (17)
  1. ZONEGRAN [Suspect]
     Indication: PRODUCT USED FOR UNKNOWN INDICATION
     Route: 048
     Dates: start: 2011, end: 20130407
  2. ZONEGRAN [Suspect]
     Dosage: 400 MG DAILY
     Route: 048
     Dates: start: 20130410
  3. EUPANTOL [Suspect]
     Indication: OESOPHAGEAL ULCER
     Dates: start: 20130408, end: 20130410
  4. EUPANTOL [Suspect]
     Route: 048
     Dates: start: 20130411, end: 20130416
  5. TRILEPTAL [Suspect]
     Indication: PRODUCT USED FOR UNKNOWN INDICATION
     Route: 048
     Dates: end: 20130407
  6. TRILEPTAL [Suspect]
     Route: 048
     Dates: start: 20130410, end: 20130415
  7. TRILEPTAL [Suspect]
     Route: 048
     Dates: start: 20130416
  8. SABRIL [Suspect]
     Indication: EPILEPSY
     Route: 048
     Dates: end: 20130407
  9. SABRIL [Suspect]
     Dosage: 2000 MG DAILY
     Route: 048
     Dates: start: 20130410
  10. OMEPRAZOLE [Concomitant]
     Dates: start: 20130314
  11. FLUISEDAL [Concomitant]
     Dates: start: 20130314
  12. RHINOTROPHYL [Concomitant]
     Dates: start: 20130314
  13. FLANID [Concomitant]
     Dates: start: 20130314
  14. CEFUROXIME [Concomitant]
     Dates: start: 20130314
  15. RIVOTRIL [Concomitant]
     Indication: PRODUCT USED FOR UNKNOWN INDICATION
     Route: 048
     Dates: end: 20130407
  16. RIVOTRIL [Concomitant]
     Dates: start: 20130408, end: 20130409
  17. RIVOTRIL [Concomitant]
     Route: 048
     Dates: start: 20130410

REACTIONS (2)
  - Folate deficiency [Recovered/Resolved]
  - Pancytopenia [Recovered/Resolved]
